FAERS Safety Report 6223298-6 (Version None)
Quarter: 2009Q2

REPORT INFORMATION
  Report Type: 
  Country: None (occurrence: None)
  Receive Date: 20090609
  Receipt Date: 20090602
  Transmission Date: 20091009
  Serious: Yes (Hospitalization)
  Sender: FDA-Public Use
  Company Number: FR-WYE-G03738509

PATIENT
  Age: 81 Year
  Sex: Male

DRUGS (23)
  1. TAZOCILLINE (PIPERACILLIN/TAZOBACTAM, INJECTION) [Suspect]
     Indication: BRONCHITIS
     Dosage: 4 G 3X PER 1 DAY INTRAVENOUS
     Route: 042
     Dates: start: 20090403, end: 20090417
  2. TAZOCILLINE (PIPERACILLIN/TAZOBACTAM, INJECTION) [Suspect]
     Indication: LUNG INFECTION
     Dosage: 4 G 3X PER 1 DAY INTRAVENOUS
     Route: 042
     Dates: start: 20090403, end: 20090417
  3. TAZOCILLINE (PIPERACILLIN/TAZOBACTAM, INJECTION) [Suspect]
     Indication: STAPHYLOCOCCAL INFECTION
     Dosage: 4 G 3X PER 1 DAY INTRAVENOUS
     Route: 042
     Dates: start: 20090403, end: 20090417
  4. AMIKACIN [Suspect]
     Dosage: 900 MG 1X PER 1 DAY INTRAVENOUS
     Route: 042
     Dates: start: 20090403, end: 20090408
  5. AMLODIPINE BESYLATE [Suspect]
     Dosage: ORAL
     Route: 048
     Dates: start: 20090328, end: 20090331
  6. ATROVENT [Suspect]
     Dates: start: 20090330
  7. BRICANYL [Suspect]
     Dates: start: 20090330
  8. NIFEDIPINE [Suspect]
     Dosage: 30 MG 1X PER 1 DAY ORAL
     Route: 048
     Dates: end: 20090327
  9. CORDARONE [Suspect]
     Dosage: 750 MG TOTAL DAILY INTRAVENOUS
     Route: 042
     Dates: start: 20090327, end: 20090429
  10. FUROSEMIDE [Suspect]
     Dosage: PROGRESSIVELY DECREASED TO 40 MG TOTAL DAILY; 125 MG TOTAL DAILY
     Dates: start: 20090327, end: 20090301
  11. FUROSEMIDE [Suspect]
     Dosage: PROGRESSIVELY DECREASED TO 40 MG TOTAL DAILY; 125 MG TOTAL DAILY
     Dates: start: 20090301, end: 20090401
  12. PREVISCAN (FLUINDIONE, , 0) [Suspect]
     Dosage: ORAL
     Route: 048
     Dates: start: 20060602, end: 20090416
  13. PREVISCAN (FLUINDIONE, , 0) [Suspect]
     Dosage: ORAL
     Route: 048
     Dates: start: 20090423, end: 20090429
  14. PREVISCAN (FLUINDIONE, , 0) [Suspect]
     Dosage: ORAL
     Route: 048
     Dates: start: 20090501, end: 20090503
  15. SYMBICORT [Suspect]
     Dosage: INHALATION
     Route: 055
     Dates: start: 20090330
  16. LEVOFLOXACIN [Suspect]
     Dosage: 500 MG 1X PER 1 DAY ORAL
     Route: 048
     Dates: start: 20090327, end: 20090330
  17. TIENAM (CILASTATIN/IMIPENEM, , 0) [Suspect]
     Dosage: 1 G 3X PER 1 DAY
     Dates: start: 20090429, end: 20090505
  18. MODURETIC 5-50 [Concomitant]
  19. NITROGLYCERIN [Concomitant]
  20. RAMIPRIL [Concomitant]
  21. VENTOLIN [Concomitant]
  22. CALCIPARINE [Concomitant]
  23. PANTOPRAZOLE SODIUM [Concomitant]

REACTIONS (4)
  - AGRANULOCYTOSIS [None]
  - CONDITION AGGRAVATED [None]
  - MYELODYSPLASTIC SYNDROME [None]
  - MYELOID MATURATION ARREST [None]
